FAERS Safety Report 17214869 (Version 12)
Quarter: 2024Q1

REPORT INFORMATION
  Report Type: Spontaneous
  Country: SK (occurrence: SK)
  Receive Date: 20191230
  Receipt Date: 20240327
  Transmission Date: 20240410
  Serious: Yes (Hospitalization, Other)
  Sender: FDA-Public Use
  Company Number: SK-TEVA-2019-SK-1155653

PATIENT
  Age: 44 Year
  Sex: Female

DRUGS (58)
  1. ARIPIPRAZOLE [Suspect]
     Active Substance: ARIPIPRAZOLE
     Indication: Schizophrenia
     Dosage: UNK
     Route: 065
  2. ARIPIPRAZOLE [Suspect]
     Active Substance: ARIPIPRAZOLE
     Indication: Psychotherapy
  3. ARIPIPRAZOLE [Suspect]
     Active Substance: ARIPIPRAZOLE
     Indication: Antidepressant therapy
  4. FLUPENTIXOL [Suspect]
     Active Substance: FLUPENTIXOL
     Indication: Schizophrenia
     Dosage: UNK
     Route: 065
  5. FLUPENTIXOL [Suspect]
     Active Substance: FLUPENTIXOL
     Indication: Psychotherapy
  6. CITALOPRAM [Suspect]
     Active Substance: CITALOPRAM\CITALOPRAM HYDROBROMIDE
     Indication: Antidepressant therapy
     Dosage: UNK
     Route: 065
  7. CITALOPRAM [Suspect]
     Active Substance: CITALOPRAM\CITALOPRAM HYDROBROMIDE
     Indication: Schizophrenia
  8. RISPERIDONE [Suspect]
     Active Substance: RISPERIDONE
     Indication: Personality disorder
     Dosage: UNK (SMALL DOSE)
     Route: 065
  9. RISPERIDONE [Suspect]
     Active Substance: RISPERIDONE
     Indication: Psychotherapy
  10. RISPERIDONE [Suspect]
     Active Substance: RISPERIDONE
     Indication: Schizophrenia
  11. MIRTAZAPINE [Suspect]
     Active Substance: MIRTAZAPINE
     Indication: Antidepressant therapy
     Dosage: UNK
     Route: 065
  12. MIRTAZAPINE [Suspect]
     Active Substance: MIRTAZAPINE
     Indication: Schizophrenia
  13. LITHIUM [Suspect]
     Active Substance: LITHIUM
     Indication: Affective disorder
     Dosage: UNK
     Route: 065
  14. LITHIUM [Suspect]
     Active Substance: LITHIUM
     Indication: Schizophrenia
  15. VENLAFAXINE [Suspect]
     Active Substance: VENLAFAXINE HYDROCHLORIDE
     Indication: Antidepressant therapy
     Dosage: UNK
     Route: 065
  16. VENLAFAXINE [Suspect]
     Active Substance: VENLAFAXINE HYDROCHLORIDE
     Indication: Schizophrenia
  17. CLONAZEPAM [Suspect]
     Active Substance: CLONAZEPAM
     Indication: Anxiolytic therapy
     Dosage: UNK
     Route: 065
  18. CLONAZEPAM [Suspect]
     Active Substance: CLONAZEPAM
     Indication: Affective disorder
  19. CLONAZEPAM [Suspect]
     Active Substance: CLONAZEPAM
     Indication: Schizophrenia
  20. SERTRALINE [Suspect]
     Active Substance: SERTRALINE HYDROCHLORIDE
     Indication: Antidepressant therapy
     Dosage: UNK
     Route: 065
  21. SERTRALINE [Suspect]
     Active Substance: SERTRALINE HYDROCHLORIDE
     Indication: Schizophrenia
  22. CHLORPROTHIXENE [Suspect]
     Active Substance: CHLORPROTHIXENE
     Indication: Psychotherapy
     Dosage: UNK
     Route: 065
  23. CHLORPROTHIXENE [Suspect]
     Active Substance: CHLORPROTHIXENE
     Indication: Schizophrenia
  24. ZIPRASIDONE [Suspect]
     Active Substance: ZIPRASIDONE
     Indication: Psychotherapy
     Dosage: UNK
     Route: 065
  25. ZIPRASIDONE [Suspect]
     Active Substance: ZIPRASIDONE
     Indication: Schizophrenia
  26. ALPRAZOLAM [Suspect]
     Active Substance: ALPRAZOLAM
     Indication: Anxiolytic therapy
     Dosage: UNK
     Route: 065
  27. ALPRAZOLAM [Suspect]
     Active Substance: ALPRAZOLAM
     Indication: Schizophrenia
  28. MIANSERIN [Suspect]
     Active Substance: MIANSERIN
     Indication: Schizophrenia
     Dosage: UNK
     Route: 065
  29. MIANSERIN [Suspect]
     Active Substance: MIANSERIN
     Indication: Antidepressant therapy
  30. BUPROPION HYDROCHLORIDE [Suspect]
     Active Substance: BUPROPION HYDROCHLORIDE
     Indication: Antidepressant therapy
     Dosage: UNK
     Route: 065
  31. BUPROPION HYDROCHLORIDE [Suspect]
     Active Substance: BUPROPION HYDROCHLORIDE
     Indication: Schizophrenia
  32. TIAPRIDE [Suspect]
     Active Substance: TIAPRIDE
     Indication: Psychotherapy
     Dosage: UNK
     Route: 065
  33. TIAPRIDE [Suspect]
     Active Substance: TIAPRIDE
     Indication: Schizophrenia
  34. CARBAMAZEPINE [Suspect]
     Active Substance: CARBAMAZEPINE
     Indication: Affective disorder
     Dosage: UNK
     Route: 065
  35. CARBAMAZEPINE [Suspect]
     Active Substance: CARBAMAZEPINE
     Indication: Schizophrenia
  36. DULOXETINE [Suspect]
     Active Substance: DULOXETINE
     Indication: Antidepressant therapy
     Dosage: UNK
     Route: 065
  37. DULOXETINE [Suspect]
     Active Substance: DULOXETINE
     Indication: Schizophrenia
  38. TRAZODONE [Suspect]
     Active Substance: TRAZODONE HYDROCHLORIDE
     Indication: Antidepressant therapy
     Dosage: UNK
     Route: 065
  39. TRAZODONE [Suspect]
     Active Substance: TRAZODONE HYDROCHLORIDE
     Indication: Schizophrenia
  40. VALPROATE [Suspect]
     Active Substance: VALPROIC ACID
     Indication: Schizophrenia
     Dosage: UNK
     Route: 065
  41. VALPROATE [Suspect]
     Active Substance: VALPROIC ACID
     Indication: Affective disorder
  42. QUETIAPINE [Suspect]
     Active Substance: QUETIAPINE
     Indication: Psychotherapy
     Dosage: UNK
     Route: 065
  43. QUETIAPINE [Suspect]
     Active Substance: QUETIAPINE
     Indication: Schizophrenia
  44. BROMAZEPAM [Suspect]
     Active Substance: BROMAZEPAM
     Indication: Anxiolytic therapy
     Dosage: UNK
     Route: 065
  45. BROMAZEPAM [Suspect]
     Active Substance: BROMAZEPAM
     Indication: Schizophrenia
  46. AMITRIPTYLINE [Suspect]
     Active Substance: AMITRIPTYLINE
     Indication: Antidepressant therapy
     Dosage: UNK
     Route: 065
  47. AMITRIPTYLINE [Suspect]
     Active Substance: AMITRIPTYLINE
     Indication: Schizophrenia
  48. AGOMELATINE [Suspect]
     Active Substance: AGOMELATINE
     Indication: Antidepressant therapy
     Dosage: UNK
     Route: 065
  49. AGOMELATINE [Suspect]
     Active Substance: AGOMELATINE
     Indication: Schizophrenia
  50. FLUNITRAZEPAM [Suspect]
     Active Substance: FLUNITRAZEPAM
     Indication: Anxiolytic therapy
     Dosage: UNK
     Route: 065
  51. FLUNITRAZEPAM [Suspect]
     Active Substance: FLUNITRAZEPAM
     Indication: Schizophrenia
  52. LEVOMEPROMAZINE [Suspect]
     Active Substance: LEVOMEPROMAZINE
     Indication: Psychotherapy
     Dosage: UNK
     Route: 065
  53. LEVOMEPROMAZINE [Suspect]
     Active Substance: LEVOMEPROMAZINE
     Indication: Schizophrenia
  54. BUSPIRONE HYDROCHLORIDE [Suspect]
     Active Substance: BUSPIRONE HYDROCHLORIDE
     Indication: Anxiolytic therapy
     Dosage: UNK
     Route: 065
  55. BUSPIRONE HYDROCHLORIDE [Suspect]
     Active Substance: BUSPIRONE HYDROCHLORIDE
     Indication: Schizophrenia
  56. AMISULPRIDE [Suspect]
     Active Substance: AMISULPRIDE
     Indication: Psychotherapy
     Dosage: UNK
     Route: 065
  57. AMISULPRIDE [Suspect]
     Active Substance: AMISULPRIDE
     Indication: Schizophrenia
  58. MIANSERIN HYDROCHLORIDE [Suspect]
     Active Substance: MIANSERIN HYDROCHLORIDE
     Indication: Antidepressant therapy
     Dosage: UNK
     Route: 065

REACTIONS (7)
  - Vertigo [Recovering/Resolving]
  - Suicidal ideation [Recovering/Resolving]
  - Type 2 diabetes mellitus [Not Recovered/Not Resolved]
  - Weight increased [Recovering/Resolving]
  - Extrapyramidal disorder [Recovering/Resolving]
  - Fatigue [Recovering/Resolving]
  - Drug ineffective [Unknown]
